FAERS Safety Report 14634525 (Version 2)
Quarter: 2018Q4

REPORT INFORMATION
  Report Type: Report from Study
  Country: DE (occurrence: DE)
  Receive Date: 20180314
  Receipt Date: 20181207
  Transmission Date: 20190204
  Serious: Yes (Hospitalization)
  Sender: FDA-Public Use
  Company Number: PHHY2017DE042634

PATIENT
  Age: 67 Year
  Sex: Female

DRUGS (8)
  1. NITROGLYCERIN. [Concomitant]
     Active Substance: NITROGLYCERIN
     Indication: CARDIAC FAILURE CHRONIC
     Dosage: 0.4 MG, PRN
     Route: 048
  2. ENTRESTO [Suspect]
     Active Substance: SACUBITRIL\VALSARTAN
     Indication: CARDIAC FAILURE
     Dosage: 1 DF (24/26 MG), QD
     Route: 048
     Dates: start: 20161212
  3. ALLOPURINOL. [Concomitant]
     Active Substance: ALLOPURINOL
     Indication: CARDIAC FAILURE CHRONIC
     Dosage: 1 DF (100 MG), QD
     Route: 048
  4. ENTRESTO [Suspect]
     Active Substance: SACUBITRIL\VALSARTAN
     Dosage: 1 DF, QD (1DF, 24/26 MG)
     Route: 048
     Dates: start: 201702, end: 20170301
  5. ENTRESTO [Suspect]
     Active Substance: SACUBITRIL\VALSARTAN
     Dosage: 1 DF, QD (1DF, 24/26 MG)
     Route: 048
     Dates: start: 20170315
  6. LOPERAMIDE [Concomitant]
     Active Substance: LOPERAMIDE
     Indication: CARDIAC FAILURE CHRONIC
     Dosage: 1 DF (2 MG), QD
     Route: 048
  7. L-THYROXINE [Concomitant]
     Active Substance: LEVOTHYROXINE
     Indication: CARDIAC FAILURE CHRONIC
     Dosage: 125 UG, QOD
     Route: 048
  8. L-THYROXINE [Concomitant]
     Active Substance: LEVOTHYROXINE
     Dosage: 150 UG, QOD
     Route: 048

REACTIONS (2)
  - Prescribed underdose [Unknown]
  - Syncope [Recovered/Resolved]

NARRATIVE: CASE EVENT DATE: 20161212
